FAERS Safety Report 5202409-5 (Version None)
Quarter: 2006Q4

REPORT INFORMATION
  Report Type: 
  Country: None (occurrence: None)
  Receive Date: 20061012
  Receipt Date: 20060901
  Transmission Date: 20070319
  Serious: No
  Sender: FDA-Public Use
  Company Number: 2006S1000170

PATIENT
  Sex: Male

DRUGS (2)
  1. CUBICIN [Suspect]
     Indication: SKIN DISORDER
     Dosage: 4 MG/KG;X1
     Dates: start: 20060801, end: 20060801
  2. CUBICIN [Suspect]
     Indication: SKIN INFECTION
     Dosage: 4 MG/KG;X1
     Dates: start: 20060801, end: 20060801

REACTIONS (1)
  - RENAL FAILURE ACUTE [None]
